FAERS Safety Report 13695537 (Version 2)
Quarter: 2017Q2

REPORT INFORMATION
  Report Type: Spontaneous
  Country: DE (occurrence: DE)
  Receive Date: 20170627
  Receipt Date: 20170630
  Transmission Date: 20170830
  Serious: Yes (Hospitalization, Disabling)
  Sender: FDA-Public Use
  Company Number: DE-ABBVIE-17P-062-2021919-00

PATIENT
  Sex: Male

DRUGS (13)
  1. ERGENYL CHRONO [Suspect]
     Active Substance: VALPROIC ACID
     Dosage: EXTENDED RELEASE TABLET
     Route: 048
     Dates: start: 20170413
  2. QUETIAPINE. [Concomitant]
     Active Substance: QUETIAPINE
     Indication: PRODUCT USED FOR UNKNOWN INDICATION
  3. HALOPERIDOL. [Concomitant]
     Active Substance: HALOPERIDOL
     Indication: PRODUCT USED FOR UNKNOWN INDICATION
  4. ERGENYL CHRONO [Suspect]
     Active Substance: VALPROIC ACID
     Dosage: EXTENDED RELEASE TABLET
     Route: 048
     Dates: start: 20170425
  5. EUTHYROX [Concomitant]
     Active Substance: LEVOTHYROXINE SODIUM
     Indication: PRODUCT USED FOR UNKNOWN INDICATION
  6. TAMSULOSIN [Concomitant]
     Active Substance: TAMSULOSIN
     Indication: PRODUCT USED FOR UNKNOWN INDICATION
  7. LORAZEPAM. [Concomitant]
     Active Substance: LORAZEPAM
     Indication: PRODUCT USED FOR UNKNOWN INDICATION
     Dates: start: 20170401
  8. QUETIAPINE. [Concomitant]
     Active Substance: QUETIAPINE
     Indication: PRODUCT USED FOR UNKNOWN INDICATION
     Dosage: RETARDED
  9. ERGENYL CHRONO [Suspect]
     Active Substance: VALPROIC ACID
     Dosage: EXTENDED RELEASE TABLET
     Route: 048
     Dates: start: 20170419
  10. ERGENYL CHRONO [Suspect]
     Active Substance: VALPROIC ACID
     Dosage: EXTENDED RELEASE TABLET
     Route: 048
     Dates: end: 20170502
  11. QUILONUM [Suspect]
     Active Substance: LITHIUM CARBONATE
     Indication: SCHIZOAFFECTIVE DISORDER
     Route: 048
     Dates: start: 2015, end: 20170502
  12. ERGENYL CHRONO [Suspect]
     Active Substance: VALPROIC ACID
     Indication: SCHIZOAFFECTIVE DISORDER
     Dosage: EXTENDED RELEASE TABLET
     Route: 048
     Dates: start: 20170412
  13. POTASSIUM [Concomitant]
     Active Substance: POTASSIUM
     Indication: PRODUCT USED FOR UNKNOWN INDICATION

REACTIONS (9)
  - Micturition disorder [Recovering/Resolving]
  - Cognitive disorder [Recovering/Resolving]
  - Food craving [Recovering/Resolving]
  - Polydipsia [Recovering/Resolving]
  - Toxic encephalopathy [Recovering/Resolving]
  - Confusional state [Recovering/Resolving]
  - Feeling abnormal [Recovering/Resolving]
  - Disorientation [Recovering/Resolving]
  - Depressed mood [Recovering/Resolving]

NARRATIVE: CASE EVENT DATE: 20170420
